FAERS Safety Report 5404550-0 (Version None)
Quarter: 2007Q3

REPORT INFORMATION
  Report Type: 
  Country: None (occurrence: None)
  Receive Date: 20070730
  Receipt Date: 20070716
  Transmission Date: 20080115
  Serious: Yes (Other)
  Sender: FDA-Public Use
  Company Number: B0480488A

PATIENT
  Age: 65 Year
  Sex: Female

DRUGS (1)
  1. LITHIUM SALT (FORMULATION UNKNOWN) (GENERIC) (LITHIUM SALT) [Suspect]
     Indication: SCHIZOAFFECTIVE DISORDER

REACTIONS (9)
  - DEHYDRATION [None]
  - DEPRESSED LEVEL OF CONSCIOUSNESS [None]
  - HYPERCALCAEMIA [None]
  - HYPERNATRAEMIA [None]
  - HYPERPARATHYROIDISM [None]
  - NEPHROGENIC DIABETES INSIPIDUS [None]
  - NEPHROLITHIASIS [None]
  - ORAL INTAKE REDUCED [None]
  - UROSEPSIS [None]
